FAERS Safety Report 20212511 (Version 1)
Quarter: 2021Q4

REPORT INFORMATION
  Report Type: Spontaneous
  Country: IN (occurrence: IN)
  Receive Date: 20211221
  Receipt Date: 20211221
  Transmission Date: 20220303
  Serious: Yes (Other)
  Sender: FDA-Public Use
  Company Number: IN-PFIZER INC-202101150341

PATIENT
  Age: 66 Year
  Sex: Female
  Weight: 68.2 kg

DRUGS (8)
  1. PALBOCICLIB [Suspect]
     Active Substance: PALBOCICLIB
     Indication: Breast cancer metastatic
     Dosage: 125 MG, CYCLIC (1X/DAY, 21 DAYS OUT OF 28 DAYS)
     Route: 048
     Dates: start: 20210223
  2. PALBOCICLIB [Suspect]
     Active Substance: PALBOCICLIB
     Dosage: 125 MG, 1X/DAY
     Route: 048
     Dates: start: 20210604, end: 20211028
  3. FULVESTRANT [Concomitant]
     Active Substance: FULVESTRANT
     Dosage: 500 MG
     Route: 030
  4. ZOLEDRONIC ACID [Concomitant]
     Active Substance: ZOLEDRONIC ACID
     Dosage: 4 MG
  5. ONCOLIFE PLUS [Concomitant]
     Dosage: UNK, 1X/DAY
  6. CALPOL [Concomitant]
     Active Substance: ACETAMINOPHEN
     Dosage: 500 MG THREE TIMES DAILY FOR 3 DAYS
  7. PIRITON CS [Concomitant]
     Dosage: UNK, 3X/DAY (MORNING: 2 TSP; AFTERNOON: 2 TSP; NIGHT: 2 TSP; 30 DAYS)
  8. RELIGRAST [Concomitant]
     Dosage: 300 UG, UNK (3 DAYS )
     Route: 058

REACTIONS (4)
  - White blood cell count decreased [Unknown]
  - Myelosuppression [Unknown]
  - Cough [Unknown]
  - Heart rate increased [Unknown]

NARRATIVE: CASE EVENT DATE: 20210628
